FAERS Safety Report 13164320 (Version 5)
Quarter: 2017Q4

REPORT INFORMATION
  Report Type: Report from Study
  Country: BR (occurrence: BR)
  Receive Date: 20170130
  Receipt Date: 20171116
  Transmission Date: 20180320
  Serious: Yes (Other)
  Sender: FDA-Public Use
  Company Number: PHHY2017BR007608

PATIENT
  Age: 54 Year
  Sex: Female
  Weight: 86 kg

DRUGS (3)
  1. COSENTYX [Suspect]
     Active Substance: SECUKINUMAB
     Dosage: 300 MG, QMO
     Route: 058
  2. LOSARTAN. [Concomitant]
     Active Substance: LOSARTAN
     Indication: HYPERTENSION
     Dosage: 1 DF, QD
     Route: 048
  3. COSENTYX [Suspect]
     Active Substance: SECUKINUMAB
     Indication: PSORIATIC ARTHROPATHY
     Dosage: 300 MG, QW
     Route: 058

REACTIONS (13)
  - Rheumatoid arthritis [Unknown]
  - Pruritus [Recovering/Resolving]
  - Swelling [Not Recovered/Not Resolved]
  - Wound [Not Recovered/Not Resolved]
  - Wound complication [Unknown]
  - Pain [Unknown]
  - Malaise [Unknown]
  - Head injury [Recovering/Resolving]
  - Burning sensation [Recovering/Resolving]
  - Feeling hot [Unknown]
  - Pain in extremity [Unknown]
  - Hypertension [Unknown]
  - Infection [Unknown]

NARRATIVE: CASE EVENT DATE: 20161128
